FAERS Safety Report 7123692-5 (Version None)
Quarter: 2010Q4

REPORT INFORMATION
  Report Type: 
  Country: None (occurrence: None)
  Receive Date: 20101125
  Receipt Date: 20101110
  Transmission Date: 20110411
  Serious: Yes (Other)
  Sender: FDA-Public Use
  Company Number: PHHY2010US77047

PATIENT
  Sex: Female

DRUGS (1)
  1. RECLAST [Suspect]
     Dosage: UNK
     Dates: start: 20101104

REACTIONS (5)
  - APHAGIA [None]
  - DIARRHOEA HAEMORRHAGIC [None]
  - INFLUENZA LIKE ILLNESS [None]
  - NASOPHARYNGITIS [None]
  - WEIGHT DECREASED [None]
